FAERS Safety Report 13847086 (Version 2)
Quarter: 2017Q3

REPORT INFORMATION
  Report Type: Report from Study
  Country: US (occurrence: US)
  Receive Date: 20170808
  Receipt Date: 20170816
  Transmission Date: 20171127
  Serious: No
  Sender: FDA-Public Use
  Company Number: PHEH2017US024739

PATIENT
  Age: 84 Year
  Sex: Male
  Weight: 69.39 kg

DRUGS (1)
  1. ENTRESTO [Suspect]
     Active Substance: SACUBITRIL\VALSARTAN
     Indication: CARDIAC FAILURE CONGESTIVE
     Dosage: 1 DF, (24 MG SACUBITRIL/26 MG VALSARTAN) BID
     Route: 048
     Dates: start: 20170721, end: 20170805

REACTIONS (5)
  - Tremor [Unknown]
  - Palpitations [Recovering/Resolving]
  - Dizziness [Unknown]
  - Heart rate increased [Unknown]
  - Blood pressure decreased [Unknown]

NARRATIVE: CASE EVENT DATE: 20170805
